FAERS Safety Report 5251682-6 (Version None)
Quarter: 2007Q1

REPORT INFORMATION
  Report Type: 
  Country: None (occurrence: None)
  Receive Date: 20070228
  Receipt Date: 20061011
  Transmission Date: 20070707
  Serious: No
  Sender: FDA-Public Use
  Company Number: US-GLAXOSMITHKLINE-A0623232A

PATIENT
  Age: 40 Year
  Sex: Female

DRUGS (4)
  1. LAMICTAL [Suspect]
     Indication: DEPRESSION
     Dosage: 100MG PER DAY
     Route: 048
     Dates: start: 20060927
  2. LEXAPRO [Concomitant]
  3. WELLBUTRIN XL [Concomitant]
  4. KLONOPIN [Concomitant]

REACTIONS (2)
  - AGITATION [None]
  - INSOMNIA [None]
